FAERS Safety Report 16342597 (Version 1)
Quarter: 2019Q2

REPORT INFORMATION
  Report Type: Spontaneous
  Country: RS (occurrence: RS)
  Receive Date: 20190522
  Receipt Date: 20190522
  Transmission Date: 20190711
  Serious: Yes (Other)
  Sender: FDA-Public Use
  Company Number: RS-BAYER-2018-242123

PATIENT
  Age: 70 Year
  Sex: Male

DRUGS (10)
  1. CARDIOPIRIN [Concomitant]
     Active Substance: ASPIRIN
  2. NOLPAZA [Concomitant]
     Active Substance: PANTOPRAZOLE SODIUM
  3. LORAZEPAM. [Concomitant]
     Active Substance: LORAZEPAM
  4. PLAVIX [Concomitant]
     Active Substance: CLOPIDOGREL BISULFATE
  5. NEXAVAR [Suspect]
     Active Substance: SORAFENIB
     Indication: HEPATOCELLULAR CARCINOMA
     Dosage: 400 MG DAILY
     Route: 048
     Dates: start: 20181015
  6. AMLODIPINE [Concomitant]
     Active Substance: AMLODIPINE BESYLATE
  7. TELMITEN [Concomitant]
  8. DILCORAN [PENTAERITHRITYL TETRANITRATE;PHENOBARBITAL] [Concomitant]
  9. KATOPIL [Concomitant]
     Active Substance: CAPTOPRIL
  10. HIPOLIP [ATORVASTATIN CALCIUM] [Concomitant]

REACTIONS (2)
  - Therapeutic response unexpected [Recovered/Resolved]
  - Hepatocellular carcinoma [None]

NARRATIVE: CASE EVENT DATE: 201811
